FAERS Safety Report 7471554-6 (Version None)
Quarter: 2011Q2

REPORT INFORMATION
  Report Type: 
  Country: None (occurrence: None)
  Receive Date: 20110511
  Receipt Date: 20110120
  Transmission Date: 20111010
  Serious: Yes (Hospitalization, Other)
  Sender: FDA-Public Use
  Company Number: US-BAYER-201039201NA

PATIENT
  Age: 34 Year
  Sex: Female
  Weight: 95.238 kg

DRUGS (15)
  1. LIPOFENE [Concomitant]
  2. LANCET [Concomitant]
  3. SPIRONOLACTONE [Concomitant]
  4. MELOXICAM [Concomitant]
  5. TRICOR [Concomitant]
  6. NAPROXEN [Concomitant]
  7. ALLOPURINOL [Concomitant]
  8. FUROSEMIDE [Concomitant]
  9. ONE TOUCH [Concomitant]
  10. YAZ [Suspect]
     Indication: CONTRACEPTION
     Dosage: UNK
     Dates: start: 20071201, end: 20090815
  11. YASMIN [Suspect]
  12. HYDROCHLOROTHIAZIDE [Concomitant]
  13. DROSPIRENONE AND ETHINYL ESTRADIOL [Suspect]
     Indication: CONTRACEPTION
     Dosage: UNK
     Dates: start: 20090801, end: 20091001
  14. YAZ [Suspect]
     Dosage: UNK
     Dates: start: 20090801
  15. ACIPHEX [Concomitant]
     Dosage: 20 MG, BID
     Dates: start: 20070701

REACTIONS (6)
  - INFECTION [None]
  - ABDOMINAL PAIN [None]
  - HERNIA OBSTRUCTIVE [None]
  - GALLBLADDER DISORDER [None]
  - CHOLECYSTITIS [None]
  - BILIARY DYSKINESIA [None]
